FAERS Safety Report 5088835-6 (Version None)
Quarter: 2006Q3

REPORT INFORMATION
  Report Type: 
  Country: None (occurrence: None)
  Receive Date: 20060824
  Receipt Date: 20060824
  Transmission Date: 20061208
  Serious: Yes (Life-Threatening)
  Sender: FDA-Public Use
  Company Number: None

PATIENT
  Sex: Female
  Weight: 58.9676 kg

DRUGS (1)
  1. STRATTERA [Suspect]
     Indication: ATTENTION DEFICIT/HYPERACTIVITY DISORDER
     Dosage: SEE IMAGE
     Route: 048
     Dates: start: 20060301, end: 20060801

REACTIONS (6)
  - ABDOMINAL PAIN LOWER [None]
  - ANOREXIA [None]
  - CHROMATURIA [None]
  - CONSTIPATION [None]
  - HEPATOCELLULAR DAMAGE [None]
  - PRURITUS [None]
